FAERS Safety Report 12176742 (Version 1)
Quarter: 2016Q1

REPORT INFORMATION
  Report Type: Spontaneous
  Country: US (occurrence: US)
  Receive Date: 20160314
  Receipt Date: 20160314
  Transmission Date: 20160526
  Serious: No
  Sender: FDA-Public Use
  Company Number: US-AKORN PHARMACEUTICALS-2015AKN00584

PATIENT
  Age: 75 Year
  Sex: Male

DRUGS (21)
  1. DIPHENHYDRAMINE HCL [Concomitant]
     Active Substance: DIPHENHYDRAMINE HYDROCHLORIDE
     Indication: SLEEP DISORDER
     Dosage: 25 MG, AS NEEDED
  2. GEMFIBROZIL. [Concomitant]
     Active Substance: GEMFIBROZIL
     Indication: BLOOD CHOLESTEROL
     Dosage: 600 MG, 2X/DAY
  3. HYDROXYZINE HCL [Concomitant]
     Active Substance: HYDROXYZINE HYDROCHLORIDE
     Indication: PRURITUS
     Dosage: 25 MG, 1X/DAY
  4. VITAMIN D [Concomitant]
     Active Substance: CHOLECALCIFEROL
     Dosage: 2000 MG, 1X/DAY
  5. MYORISAN [Suspect]
     Active Substance: ISOTRETINOIN
     Dosage: 40 MG, UP TO 2X/DAY
     Route: 048
     Dates: start: 201507, end: 201508
  6. COENZYME Q10 [Concomitant]
     Active Substance: UBIDECARENONE
     Dosage: 100 MG, 1X/DAY
  7. DOXEPIN HCL [Concomitant]
     Active Substance: DOXEPIN HYDROCHLORIDE
     Indication: PRURITUS
     Dosage: 25 MG, 1X/DAY
  8. METFORMIN HCL [Concomitant]
     Active Substance: METFORMIN HYDROCHLORIDE
     Indication: DIABETES MELLITUS
     Dosage: 1000 MG, 2X/DAY
  9. MYORISAN [Suspect]
     Active Substance: ISOTRETINOIN
     Indication: TRANSIENT ACANTHOLYTIC DERMATOSIS
     Dosage: 40 MG, 1X/DAY
     Route: 048
     Dates: start: 20150610, end: 201507
  10. PROBIOTIC [Concomitant]
     Active Substance: PROBIOTICS NOS
     Dosage: UNK UNK, 1X/DAY
  11. CLOBETASOL PROPIONATE. [Concomitant]
     Active Substance: CLOBETASOL PROPIONATE
     Indication: TRANSIENT ACANTHOLYTIC DERMATOSIS
     Dosage: UNK, 2X/DAY
  12. GLUCOSAMINE-CHONDROITIN-MSM [Concomitant]
     Dosage: 1200 MG, 1X/DAY
  13. MYORISAN [Suspect]
     Active Substance: ISOTRETINOIN
     Dosage: 80 MG, 1X/DAY
     Route: 048
     Dates: start: 201508, end: 20151012
  14. CALCIUM [Concomitant]
     Active Substance: CALCIUM
     Dosage: 1200 MG, 2X/DAY
  15. GLUCOSAMINE-CHONDROITIN-MSM [Concomitant]
     Dosage: 1500 MG, 1X/DAY
  16. METOPROLOL SUCCINATE XL [Concomitant]
     Active Substance: METOPROLOL SUCCINATE
     Indication: CARDIAC DISORDER
     Dosage: 25 MG, 1X/DAY
  17. TRIAMCINOLONE ACETONIDE USP 0.1% [Concomitant]
     Indication: PRURITUS
     Dosage: UNK, 2X/DAY
  18. CETIRIZINE [Concomitant]
     Active Substance: CETIRIZINE HYDROCHLORIDE
     Indication: HYPERSENSITIVITY
     Dosage: 10 MG, 1X/DAY
  19. GLUCOSAMINE-CHONDROITIN-MSM [Concomitant]
     Dosage: 2000 MG, 1X/DAY
  20. LISINOPRIL. [Concomitant]
     Active Substance: LISINOPRIL
     Indication: BLOOD PRESSURE MEASUREMENT
     Dosage: 40 MG, 1X/DAY
  21. TRAZODONE HC [Concomitant]
     Indication: SLEEP DISORDER
     Dosage: 50 MG, 1X/DAY

REACTIONS (3)
  - Very low density lipoprotein increased [Unknown]
  - Blood triglycerides increased [Unknown]
  - Drug ineffective [Not Recovered/Not Resolved]

NARRATIVE: CASE EVENT DATE: 20150610
